FAERS Safety Report 12989130 (Version 7)
Quarter: 2017Q3

REPORT INFORMATION
  Report Type: Report from Study
  Country: None (occurrence: US)
  Receive Date: 20161201
  Receipt Date: 20170811
  Transmission Date: 20171127
  Serious: Yes (Hospitalization, Other)
  Sender: FDA-Public Use
  Company Number: US-ABBVIE-16K-163-1792428-00

PATIENT
  Age: 20 Year
  Sex: Female
  Weight: 52.21 kg

DRUGS (7)
  1. HUMIRA [Suspect]
     Active Substance: ADALIMUMAB
     Indication: COLITIS ULCERATIVE
     Dosage: STANDARD TITRATION, DAY 1
     Route: 058
     Dates: start: 20160826, end: 20160826
  2. PRISTIQ EXTENDED-RELEASE [Concomitant]
     Active Substance: DESVENLAFAXINE SUCCINATE
     Indication: DEPRESSION
  3. LIALDA [Concomitant]
     Active Substance: MESALAMINE
     Indication: COLITIS ULCERATIVE
  4. ABILIFY [Concomitant]
     Active Substance: ARIPIPRAZOLE
     Indication: DEPRESSION
  5. HUMIRA [Suspect]
     Active Substance: ADALIMUMAB
     Dosage: STANDARD TITRATION, DAY 15
     Route: 058
     Dates: start: 20160909, end: 20160909
  6. HUMIRA [Suspect]
     Active Substance: ADALIMUMAB
     Route: 058
     Dates: start: 20160923, end: 20161219
  7. HUMIRA [Suspect]
     Active Substance: ADALIMUMAB
     Route: 058
     Dates: start: 20170109

REACTIONS (25)
  - Constipation [Unknown]
  - Malaise [Unknown]
  - Nausea [Unknown]
  - Abdominal pain [Recovering/Resolving]
  - Haemoptysis [Recovering/Resolving]
  - Insomnia [Unknown]
  - Injection site irritation [Unknown]
  - Injection site erythema [Not Recovered/Not Resolved]
  - Upper respiratory tract infection [Not Recovered/Not Resolved]
  - Immunodeficiency [Not Recovered/Not Resolved]
  - Drug level increased [Recovering/Resolving]
  - Injection site pruritus [Not Recovered/Not Resolved]
  - Decreased appetite [Unknown]
  - Weight decreased [Unknown]
  - Constipation [Recovering/Resolving]
  - Diarrhoea [Recovering/Resolving]
  - Depression [Recovering/Resolving]
  - Bronchitis [Recovered/Resolved]
  - Rectal haemorrhage [Unknown]
  - Nasopharyngitis [Recovered/Resolved]
  - Injection site swelling [Not Recovered/Not Resolved]
  - Anxiety [Recovering/Resolving]
  - Injection site papule [Unknown]
  - Abdominal pain upper [Unknown]
  - Vomiting [Unknown]

NARRATIVE: CASE EVENT DATE: 2016
